FAERS Safety Report 4440327-0 (Version None)
Quarter: 2004Q3

REPORT INFORMATION
  Report Type: 
  Country: None (occurrence: None)
  Receive Date: 20040831
  Receipt Date: 20040825
  Transmission Date: 20050211
  Serious: Yes (Hospitalization)
  Sender: FDA-Public Use
  Company Number: STA-AE-04-MTX-385

PATIENT
  Age: 22 Year
  Sex: Female

DRUGS (11)
  1. RHEUMATREX [Suspect]
     Indication: RHEUMATOID ARTHRITIS
     Dosage: 4 MG; 1X PER 1 WK, ORAL
     Route: 048
     Dates: start: 20020601, end: 20030512
  2. RHEUMATREX [Suspect]
     Dosage: 6 MG 1X PER 1 WK, ORAL
     Route: 048
     Dates: start: 20030513, end: 20030904
  3. RHEUMATREX [Suspect]
     Dosage: 8 MG 1X PER 1 WK, ORAL
     Route: 048
     Dates: start: 20030905, end: 20031202
  4. RHEUMATREX [Suspect]
     Dosage: 4 MG 1X PER 1 WK, ORAL
     Route: 048
     Dates: start: 20031220, end: 20031225
  5. RHEUMATREX [Suspect]
     Dosage: 6 MG 1X PER 1 WK, ORAL
     Route: 048
     Dates: start: 20031226
  6. PREDNISOLONE [Suspect]
     Indication: RHEUMATOID ARTHRITIS
     Dosage: 5 MG 1X PER 1 DAY, ORAL
     Route: 048
     Dates: start: 20010901
  7. REMICADE [Suspect]
     Indication: RHEUMATOID ARTHRITIS
     Dosage: 3 MG/KG/DAY, INTRAVENOUS
     Route: 042
     Dates: start: 20031104, end: 20031104
  8. REMICADE [Suspect]
     Dosage: 3 MG/KG/DAY, INTRAVENOUS
     Route: 042
     Dates: start: 20031118, end: 20031118
  9. SULFASALAZINE [Suspect]
     Indication: RHEUMATOID ARTHRITIS
     Dosage: 1 G 1X PER 1 DAY, ORAL
     Route: 048
  10. CIMETIDINE [Concomitant]
  11. FOLIC ACID [Concomitant]

REACTIONS (3)
  - ABDOMINAL PAIN [None]
  - ECZEMA [None]
  - HERPES ZOSTER [None]
